FAERS Safety Report 14256384 (Version 2)
Quarter: 2018Q1

REPORT INFORMATION
  Report Type: Report from Study
  Country: CN (occurrence: CN)
  Receive Date: 20171206
  Receipt Date: 20180123
  Transmission Date: 20180508
  Serious: Yes (Death, Hospitalization, Other)
  Sender: FDA-Public Use
  Company Number: CN-BAYER-2017-212609

PATIENT
  Age: 72 Year
  Sex: Male

DRUGS (2)
  1. NEXAVAR [Suspect]
     Active Substance: SORAFENIB
     Indication: HEPATOCELLULAR CARCINOMA
     Dosage: UNK
     Route: 048
     Dates: start: 20170310, end: 2017
  2. NEXAVAR [Suspect]
     Active Substance: SORAFENIB
     Indication: HEPATOCELLULAR CARCINOMA
     Dosage: UNK
     Route: 048
     Dates: start: 20170510, end: 2017

REACTIONS (5)
  - Death [Fatal]
  - Bilirubin conjugated increased [None]
  - Hepatic failure [Not Recovered/Not Resolved]
  - Metastases to spine [Not Recovered/Not Resolved]
  - Blood bilirubin unconjugated increased [None]

NARRATIVE: CASE EVENT DATE: 201710
